FAERS Safety Report 5319727-2 (Version None)
Quarter: 2007Q2

REPORT INFORMATION
  Report Type: 
  Country: None (occurrence: None)
  Receive Date: 20070503
  Receipt Date: 20070423
  Transmission Date: 20071010
  Serious: Yes (Hospitalization)
  Sender: FDA-Public Use
  Company Number: 2007SP007617

PATIENT
  Age: 59 Year
  Sex: Female
  Weight: 66.6 kg

DRUGS (4)
  1. PEG-INTRON [Suspect]
     Indication: HEPATITIS C
     Dosage: 1.5 MCG/ KG; QW; SC
     Route: 058
     Dates: start: 20070202, end: 20070406
  2. RIBAVIRIN [Suspect]
     Indication: HEPATITIS C
     Dosage: 1000 MG; QD; PO
     Route: 048
     Dates: start: 20070202
  3. OMEPRAZOLE (CON.) [Concomitant]
  4. HYDROXISINE (CON.) [Concomitant]

REACTIONS (6)
  - GROIN PAIN [None]
  - HYPERAEMIA [None]
  - HYPOTENSION [None]
  - INFECTION [None]
  - INTENTIONAL OVERDOSE [None]
  - PAIN IN EXTREMITY [None]
